FAERS Safety Report 21700915 (Version 3)
Quarter: 2023Q1

REPORT INFORMATION
  Report Type: Report from Study
  Country: EG (occurrence: EG)
  Receive Date: 20221208
  Receipt Date: 20230213
  Transmission Date: 20230418
  Serious: Yes (Other)
  Sender: FDA-Public Use
  Company Number: EG-002147023-NVSC2022EG248571

PATIENT
  Age: 54 Year
  Sex: Female

DRUGS (5)
  1. KISQALI [Suspect]
     Active Substance: RIBOCICLIB
     Indication: Breast cancer metastatic
     Dosage: 3 DOSAGE FORM, QD (FOR 21 DAYS AND ONE WEEK OFF)
     Route: 048
     Dates: start: 20220501
  2. FEMARA [Concomitant]
     Active Substance: LETROZOLE
     Indication: Product used for unknown indication
     Dosage: 1 DOSAGE FORM, QD
     Route: 048
     Dates: start: 20220501
  3. ZOMETA [Concomitant]
     Active Substance: ZOLEDRONIC ACID
     Indication: Product used for unknown indication
     Dosage: UNK (EVERY MONTH AND THEN EVERY 2 MONTHS)
     Route: 065
     Dates: start: 20220702
  4. CORTISONE [Concomitant]
     Active Substance: CORTISONE
     Indication: Product used for unknown indication
     Dosage: UNK
     Route: 048
  5. CORTISONE [Concomitant]
     Active Substance: CORTISONE
     Dosage: 1 DOSAGE FORM, QD
     Route: 065
     Dates: start: 202209, end: 20221015

REACTIONS (15)
  - Metastases to spine [Recovering/Resolving]
  - Haemoglobin decreased [Recovering/Resolving]
  - Platelet count decreased [Recovering/Resolving]
  - Nausea [Not Recovered/Not Resolved]
  - Epistaxis [Recovering/Resolving]
  - Decreased immune responsiveness [Recovering/Resolving]
  - Dizziness [Not Recovered/Not Resolved]
  - Haematemesis [Recovering/Resolving]
  - Decreased appetite [Not Recovered/Not Resolved]
  - General physical condition abnormal [Unknown]
  - Hypotension [Not Recovered/Not Resolved]
  - Gastric disorder [Unknown]
  - Movement disorder [Unknown]
  - Diarrhoea [Unknown]
  - Product dose omission issue [Unknown]

NARRATIVE: CASE EVENT DATE: 20220501
